FAERS Safety Report 4319900-6 (Version None)
Quarter: 2004Q1

REPORT INFORMATION
  Report Type: 
  Country: None (occurrence: None)
  Receive Date: 20040319
  Receipt Date: 20040310
  Transmission Date: 20041129
  Serious: Yes (Other)
  Sender: FDA-Public Use
  Company Number: PHNR2004AU00776

PATIENT
  Sex: Male

DRUGS (1)
  1. CLOZARIL [Suspect]
     Indication: SCHIZOPHRENIA
     Dosage: 75 - 600 MG/DAY
     Route: 048
     Dates: start: 20030110

REACTIONS (8)
  - DYSPNOEA [None]
  - EOSINOPHIL COUNT INCREASED [None]
  - EXERCISE TOLERANCE DECREASED [None]
  - NEUTROPHIL COUNT INCREASED [None]
  - PERICARDIAL EFFUSION [None]
  - SLEEP APNOEA SYNDROME [None]
  - WEIGHT INCREASED [None]
  - WHITE BLOOD CELL COUNT INCREASED [None]
